FAERS Safety Report 6369907-2 (Version None)
Quarter: 2009Q3

REPORT INFORMATION
  Report Type: 
  Country: None (occurrence: None)
  Receive Date: 20090923
  Receipt Date: 20070511
  Transmission Date: 20100115
  Serious: Yes (Other)
  Sender: FDA-Public Use
  Company Number: US-ASTRAZENECA-2006UW11091

PATIENT
  Age: 16124 Day
  Sex: Female
  Weight: 86.2 kg

DRUGS (12)
  1. SEROQUEL [Suspect]
     Indication: PSYCHOTIC BEHAVIOUR
     Dosage: 100 TO 300 MG DAILY
     Route: 048
     Dates: start: 19980329, end: 20010612
  2. RISPERDAL [Concomitant]
     Dates: start: 19990305
  3. ZYPREXA [Concomitant]
  4. TRILAFON [Concomitant]
  5. OTHER PSYCHIATRIC MEDICATION [Concomitant]
  6. ZOLOFT [Concomitant]
     Dosage: 50 TO 100 MG
     Dates: start: 19990326
  7. NEURONTIN [Concomitant]
     Dosage: 300 TO 900 MG TWICE DAILY
     Dates: start: 19980329
  8. VASOTEC [Concomitant]
     Dates: start: 19980119
  9. GLUCOTROL [Concomitant]
     Dates: start: 19990326
  10. ATIVAN [Concomitant]
     Indication: ANXIETY
     Dosage: 0.5 TO 4 MG
     Dates: start: 19980329, end: 20001120
  11. PRAVACHOL [Concomitant]
     Dates: start: 19980329, end: 20050920
  12. ACTOS [Concomitant]

REACTIONS (2)
  - DIABETES MELLITUS [None]
  - DIABETES MELLITUS INADEQUATE CONTROL [None]
